FAERS Safety Report 5390460-4 (Version None)
Quarter: 2007Q3

REPORT INFORMATION
  Report Type: 
  Country: None (occurrence: None)
  Receive Date: 20070718
  Receipt Date: 20060718
  Transmission Date: 20080115
  Serious: No
  Sender: FDA-Public Use
  Company Number: US-KINGPHARMUSA00001-K200600945

PATIENT

DRUGS (1)
  1. LEVOXYL [Suspect]
     Route: 048

REACTIONS (2)
  - CONSTIPATION [None]
  - FLUID RETENTION [None]
